FAERS Safety Report 24436478 (Version 1)
Quarter: 2024Q4

REPORT INFORMATION
  Report Type: Spontaneous
  Country: FR (occurrence: FR)
  Receive Date: 20241015
  Receipt Date: 20241015
  Transmission Date: 20250115
  Serious: Yes (Hospitalization, Other)
  Sender: AUROBINDO
  Company Number: FR-AFSSAPS-AN2024001347

PATIENT
  Age: 42 Year
  Sex: Female

DRUGS (4)
  1. ACETAMINOPHEN [Suspect]
     Active Substance: ACETAMINOPHEN
     Indication: Influenza like illness
     Dosage: UNK
     Route: 048
     Dates: start: 20231229, end: 20240102
  2. MAXILASE [Suspect]
     Active Substance: PANCRELIPASE
     Indication: Influenza like illness
     Dosage: UNK
     Route: 048
     Dates: start: 20231229, end: 20240102
  3. ACETYLCYSTEINE [Suspect]
     Active Substance: ACETYLCYSTEINE
     Indication: Influenza like illness
     Dosage: UNK
     Route: 048
     Dates: start: 20231229, end: 20240102
  4. TIXOCORTOL PIVALATE [Suspect]
     Active Substance: TIXOCORTOL PIVALATE
     Indication: Influenza like illness
     Dosage: UNK
     Route: 045
     Dates: start: 20231229, end: 20240102

REACTIONS (1)
  - Cutaneous vasculitis [Recovered/Resolved]

NARRATIVE: CASE EVENT DATE: 20240102
